FAERS Safety Report 25472951 (Version 1)
Quarter: 2025Q2

REPORT INFORMATION
  Report Type: Spontaneous
  Country: US (occurrence: None)
  Receive Date: 20250623
  Receipt Date: 20250623
  Transmission Date: 20250717
  Serious: Yes (Life-Threatening)
  Sender: FDA-CTU
  Company Number: None

PATIENT
  Age: 38 Year
  Sex: Female
  Weight: 84.6 kg

DRUGS (2)
  1. ELUCIREM [Suspect]
     Active Substance: GADOPICLENOL
     Indication: Breast cancer
     Route: 040
  2. ELUCIREM [Suspect]
     Active Substance: GADOPICLENOL
     Indication: Cancer screening

REACTIONS (1)
  - Anaphylactic reaction [None]

NARRATIVE: CASE EVENT DATE: 20250623
